FAERS Safety Report 26115563 (Version 1)
Quarter: 2025Q4

REPORT INFORMATION
  Report Type: Spontaneous
  Country: US (occurrence: US)
  Receive Date: 20251203
  Receipt Date: 20251203
  Transmission Date: 20260119
  Serious: No
  Sender: MITSUBISHI TANABE PHARMA
  Company Number: US-TANABE_PHARMA-MTPA2025-0021114

PATIENT

DRUGS (2)
  1. RADICAVA ORS [Suspect]
     Active Substance: EDARAVONE
     Indication: Product used for unknown indication
     Route: 065
  2. RADICAVA ORS [Suspect]
     Active Substance: EDARAVONE
     Indication: Product used for unknown indication
     Route: 065

REACTIONS (5)
  - Muscular weakness [Unknown]
  - Hypopnoea [Unknown]
  - Chest discomfort [Unknown]
  - General physical condition abnormal [Unknown]
  - Visual impairment [Unknown]
